FAERS Safety Report 21606469 (Version 2)
Quarter: 2022Q4

REPORT INFORMATION
  Report Type: Spontaneous
  Country: BR (occurrence: BR)
  Receive Date: 20221117
  Receipt Date: 20221124
  Transmission Date: 20230113
  Serious: No
  Sender: FDA-Public Use
  Company Number: BR-ABBOTT-2022A-1355619

PATIENT
  Age: 63 Year
  Sex: Male
  Weight: 101 kg

DRUGS (3)
  1. DEPAKOTE [Suspect]
     Active Substance: DIVALPROEX SODIUM
     Indication: Product used for unknown indication
     Dosage: TAKES EVERY NIGHT.
     Route: 048
  2. DEPAKOTE [Suspect]
     Active Substance: DIVALPROEX SODIUM
     Indication: Product used for unknown indication
     Dosage: ER
     Route: 048
     Dates: start: 20221105
  3. DEPAKOTE [Suspect]
     Active Substance: DIVALPROEX SODIUM
     Indication: Product used for unknown indication
     Dosage: TAKES EVERY NIGHT.
     Route: 048

REACTIONS (6)
  - Mental disorder [Unknown]
  - Product dose omission issue [Unknown]
  - Malaise [Unknown]
  - Panic disorder [Unknown]
  - Drug withdrawal headache [Unknown]
  - Withdrawal syndrome [Unknown]
